FAERS Safety Report 5978834-1 (Version None)
Quarter: 2008Q4

REPORT INFORMATION
  Report Type: 
  Country: None (occurrence: None)
  Receive Date: 20081204
  Receipt Date: 20081126
  Transmission Date: 20090506
  Serious: Yes (Hospitalization)
  Sender: FDA-Public Use
  Company Number: PHBS2008JP06473

PATIENT
  Age: 11 Month
  Sex: Male

DRUGS (6)
  1. CYCLOSPORINE [Suspect]
     Indication: BONE MARROW TRANSPLANT
  2. CYCLOSPORINE [Suspect]
     Indication: PROPHYLAXIS AGAINST GRAFT VERSUS HOST DISEASE
  3. METHOTREXATE [Concomitant]
     Indication: PROPHYLAXIS AGAINST GRAFT VERSUS HOST DISEASE
  4. IRRADIATION [Concomitant]
     Dosage: 12 GY
  5. ARA-C [Concomitant]
     Dosage: 2 G/M2
  6. CYCLOPHOSPHAMIDE [Concomitant]
     Dosage: 60 MG/KG/DAY

REACTIONS (3)
  - ACUTE GRAFT VERSUS HOST DISEASE IN INTESTINE [None]
  - LEUKAEMIC INFILTRATION EXTRAMEDULLARY [None]
  - ORCHIDECTOMY [None]
